FAERS Safety Report 6427047-8 (Version None)
Quarter: 2009Q4

REPORT INFORMATION
  Report Type: 
  Country: None (occurrence: None)
  Receive Date: 20091104
  Receipt Date: 20091026
  Transmission Date: 20100525
  Serious: Yes (Other)
  Sender: FDA-Public Use
  Company Number: PL-WATSON-2009-09050

PATIENT
  Age: 17 Year
  Sex: Female

DRUGS (3)
  1. CYCLOSPORINE [Suspect]
     Indication: APLASTIC ANAEMIA
     Dosage: 5 MG/KG, IN TWO DOSES
     Route: 048
  2. METHYLPREDNISOLONE ACETATE [Suspect]
     Indication: APLASTIC ANAEMIA
     Dosage: 2, 1, 0.5 MG/KG FOR 3 WEEKS
     Route: 042
  3. LEVORA (UNKNOWN) (WATSON LABORATORIES) [Suspect]
     Indication: MENSTRUAL DISORDER
     Route: 048

REACTIONS (1)
  - FIBROADENOMA OF BREAST [None]
